FAERS Safety Report 4610445-2 (Version None)
Quarter: 2005Q1

REPORT INFORMATION
  Report Type: 
  Country: None (occurrence: None)
  Receive Date: 20050314
  Receipt Date: 20050301
  Transmission Date: 20050727
  Serious: Yes (Death, Hospitalization, Other)
  Sender: FDA-Public Use
  Company Number: 2005-00115

PATIENT
  Age: 52 Year
  Sex: Male

DRUGS (3)
  1. VELCADE [Suspect]
     Indication: MULTIPLE MYELOMA
     Dosage: 2.43 MG, 2/WEEK,  INTRAVENOUS
     Route: 042
     Dates: start: 20041105, end: 20041108
  2. MORPHINE SULFATE [Concomitant]
  3. DIAZEPAM [Concomitant]

REACTIONS (15)
  - ALANINE AMINOTRANSFERASE INCREASED [None]
  - AMMONIA INCREASED [None]
  - ANAEMIA [None]
  - BLOOD CREATININE INCREASED [None]
  - DIARRHOEA [None]
  - HEPATIC CYST [None]
  - MALIGNANT NEOPLASM PROGRESSION [None]
  - MENTAL STATUS CHANGES [None]
  - MULTIPLE MYELOMA [None]
  - NAUSEA [None]
  - ORTHOSTATIC HYPOTENSION [None]
  - PLATELET COUNT DECREASED [None]
  - SOMNOLENCE [None]
  - SPLENOMEGALY [None]
  - VOMITING [None]
